APPROVED DRUG PRODUCT: CEFACLOR
Active Ingredient: CEFACLOR
Strength: EQ 375MG BASE/5ML
Dosage Form/Route: FOR SUSPENSION;ORAL
Application: A062206 | Product #004
Applicant: FACTA FARMACEUTICI SPA
Approved: Apr 20, 1988 | RLD: No | RS: No | Type: DISCN